FAERS Safety Report 7052680-2 (Version None)
Quarter: 2010Q4

REPORT INFORMATION
  Report Type: 
  Country: None (occurrence: None)
  Receive Date: 20101019
  Receipt Date: 20101011
  Transmission Date: 20110411
  Serious: Yes (Other)
  Sender: FDA-Public Use
  Company Number: US-PFIZER INC-2010103593

PATIENT
  Sex: Female
  Weight: 127 kg

DRUGS (7)
  1. CHANTIX [Suspect]
     Indication: SMOKING CESSATION THERAPY
     Dosage: 1 MG, 2X/DAY
     Route: 048
     Dates: start: 20050101
  2. NEURONTIN [Suspect]
     Indication: FIBROMYALGIA
     Dosage: 300 MG, 2X/DAY
     Route: 048
     Dates: start: 20100301
  3. DETROL LA [Suspect]
     Indication: HYPERTONIC BLADDER
     Dosage: 2 MG, DAILY
     Route: 048
     Dates: start: 20100811
  4. ALLEGRA [Concomitant]
     Dosage: 180 MG, DAILY
  5. PAXIL CR [Concomitant]
     Dosage: 50 MG, DAILY
  6. RELPAX [Concomitant]
     Indication: MIGRAINE
     Dosage: UNK, AS NEEDED
  7. RELPAX [Concomitant]
     Indication: HEADACHE

REACTIONS (2)
  - HYPERTONIC BLADDER [None]
  - SWELLING FACE [None]
